FAERS Safety Report 5485582-3 (Version None)
Quarter: 2007Q4

REPORT INFORMATION
  Report Type: 
  Country: None (occurrence: None)
  Receive Date: 20071011
  Receipt Date: 20071011
  Transmission Date: 20080405
  Serious: Yes (Other)
  Sender: FDA-Public Use
  Company Number: None

PATIENT
  Sex: Female
  Weight: 68.0396 kg

DRUGS (1)
  1. PROTONIX [Suspect]
     Indication: DYSPEPSIA
     Dosage: (ONE DOSE)
     Dates: start: 20061010, end: 20061010

REACTIONS (3)
  - OEDEMA PERIPHERAL [None]
  - RASH [None]
  - SKIN EXFOLIATION [None]
